FAERS Safety Report 4732645-3 (Version None)
Quarter: 2005Q3

REPORT INFORMATION
  Report Type: 
  Country: None (occurrence: None)
  Receive Date: 20050802
  Receipt Date: 20050802
  Transmission Date: 20060218
  Serious: Yes (Hospitalization)
  Sender: FDA-Public Use
  Company Number: None

PATIENT
  Age: 87 Year
  Sex: Male
  Weight: 92 kg

DRUGS (5)
  1. PIPERACILLIN/TAZOBACTAM 3.357 G [Suspect]
     Indication: PSEUDOMONAS INFECTION
     Dosage: 3.375G IV Q6
  2. FELODIPINE [Concomitant]
  3. METOPROLOL TARTRATE [Concomitant]
  4. OMEPRAZOLE [Concomitant]
  5. ENOXAPARIN SODIUM [Concomitant]

REACTIONS (3)
  - NEPHRITIS INTERSTITIAL [None]
  - PLATELET COUNT DECREASED [None]
  - RENAL FAILURE [None]
